FAERS Safety Report 20224109 (Version 1)
Quarter: 2021Q4

REPORT INFORMATION
  Report Type: Spontaneous
  Country: DE (occurrence: DE)
  Receive Date: 20211223
  Receipt Date: 20211223
  Transmission Date: 20220303
  Serious: Yes (Life-Threatening, Hospitalization, Other)
  Sender: FDA-Public Use
  Company Number: DE-ARISTO PHARMA-LAMO202111111

PATIENT
  Age: 60 Year
  Sex: Female

DRUGS (4)
  1. LAMOTRIGINE [Suspect]
     Active Substance: LAMOTRIGINE
     Indication: Depression
     Dosage: UNK
  2. SMOFLIPID [Suspect]
     Active Substance: FISH OIL\MEDIUM-CHAIN TRIGLYCERIDES\OLIVE OIL\SOYBEAN OIL
     Indication: Toxicity to various agents
     Dosage: 250 MILLILITER, Q14H ((RECEIVED 20% 250ML INFUSION OVER 14HOURS)
  3. NALOXONE [Concomitant]
     Active Substance: NALOXONE
     Indication: Drug therapy
     Dosage: UNK
  4. DEXTROSE [Concomitant]
     Active Substance: DEXTROSE
     Indication: Drug therapy
     Dosage: UNK

REACTIONS (6)
  - Neurotoxicity [Recovered/Resolved]
  - Drug ineffective [Unknown]
  - Epilepsy [Recovered/Resolved]
  - Coma [Recovered/Resolved]
  - Toxicity to various agents [Recovered/Resolved]
  - Overdose [Recovered/Resolved]
